APPROVED DRUG PRODUCT: CHLORZOXAZONE
Active Ingredient: CHLORZOXAZONE
Strength: 750MG
Dosage Form/Route: TABLET;ORAL
Application: A214941 | Product #003 | TE Code: AB
Applicant: COREPHARMA LLC
Approved: Oct 20, 2022 | RLD: No | RS: No | Type: RX